FAERS Safety Report 11914978 (Version 1)
Quarter: 2016Q1

REPORT INFORMATION
  Report Type: Spontaneous
  Country: FR (occurrence: FR)
  Receive Date: 20160113
  Receipt Date: 20160113
  Transmission Date: 20160526
  Serious: Yes (Hospitalization, Other)
  Sender: FDA-Public Use
  Company Number: FR-BRISTOL-MYERS SQUIBB COMPANY-10618569

PATIENT
  Age: 0 Day
  Sex: Male
  Weight: 1.28 kg

DRUGS (5)
  1. EPIVIR [Suspect]
     Active Substance: LAMIVUDINE
     Indication: PRODUCT USED FOR UNKNOWN INDICATION
     Dosage: UNK
     Route: 064
  2. ZERIT [Suspect]
     Active Substance: STAVUDINE
     Indication: PRODUCT USED FOR UNKNOWN INDICATION
     Dosage: UNK
     Route: 064
  3. NORVIR [Suspect]
     Active Substance: RITONAVIR
     Indication: PRODUCT USED FOR UNKNOWN INDICATION
     Dosage: UNK
     Route: 064
  4. EPIVIR [Suspect]
     Active Substance: LAMIVUDINE
     Indication: ANTIRETROVIRAL THERAPY
     Dosage: UNK
     Route: 048
  5. RETROVIR [Suspect]
     Active Substance: ZIDOVUDINE
     Indication: ANTIRETROVIRAL THERAPY
     Dosage: GIVEN FOR 14 DAYS AFTER BIRTH (OVERDOSAGE DURING 8 DAYS)
     Route: 065

REACTIONS (12)
  - Toe walking [Unknown]
  - Anaemia [Not Recovered/Not Resolved]
  - Developmental delay [Not Recovered/Not Resolved]
  - Dyspraxia [Unknown]
  - Overdose [Unknown]
  - Respiratory distress [Unknown]
  - Muscle atrophy [Not Recovered/Not Resolved]
  - Blood creatine phosphokinase increased [Recovered/Resolved]
  - Transaminases increased [Not Recovered/Not Resolved]
  - Foetal exposure during pregnancy [Recovered/Resolved]
  - Thrombocytopenia [Unknown]
  - Premature baby [Unknown]

NARRATIVE: CASE EVENT DATE: 19980821
